FAERS Safety Report 10228940 (Version 1)
Quarter: 2014Q2

REPORT INFORMATION
  Report Type: Spontaneous
  Country: US (occurrence: US)
  Receive Date: 20140610
  Receipt Date: 20140610
  Transmission Date: 20141212
  Serious: Yes (Disabling, Other)
  Sender: FDA-Public Use
  Company Number: US-GLAXOSMITHKLINE-A1075910A

PATIENT
  Sex: Female

DRUGS (6)
  1. CARVEDILOL [Suspect]
     Indication: HEART RATE IRREGULAR
     Dosage: 3.125MG UNKNOWN
     Route: 048
  2. SINGULAIR [Suspect]
     Indication: PRODUCT USED FOR UNKNOWN INDICATION
     Route: 065
  3. FISH OIL [Suspect]
     Indication: PRODUCT USED FOR UNKNOWN INDICATION
     Dosage: 500MG PER DAY
     Route: 065
  4. DIAZEPAM [Concomitant]
  5. METHYLFOLATE [Concomitant]
  6. LISINOPRIL [Concomitant]

REACTIONS (9)
  - Cardiac flutter [Not Recovered/Not Resolved]
  - Tachycardia [Unknown]
  - Heart rate irregular [Unknown]
  - Nausea [Unknown]
  - Dyspnoea [Recovering/Resolving]
  - Nightmare [Unknown]
  - Malaise [Unknown]
  - Drug withdrawal syndrome [Unknown]
  - Chest discomfort [Unknown]
